FAERS Safety Report 7041514-8 (Version None)
Quarter: 2010Q4

REPORT INFORMATION
  Report Type: 
  Country: None (occurrence: None)
  Receive Date: 20101013
  Receipt Date: 20100409
  Transmission Date: 20110411
  Serious: No
  Sender: FDA-Public Use
  Company Number: US-ASTRAZENECA-2010SE15734

PATIENT
  Age: 26069 Day
  Sex: Female

DRUGS (1)
  1. SYMBICORT [Suspect]
     Indication: CHRONIC OBSTRUCTIVE PULMONARY DISEASE
     Dosage: 640 MG, 2 PUFFS 2 TIMES A DAY
     Route: 055
     Dates: start: 20091201, end: 20100301

REACTIONS (2)
  - CANDIDIASIS [None]
  - VULVOVAGINAL MYCOTIC INFECTION [None]
